FAERS Safety Report 6392459-8 (Version None)
Quarter: 2009Q4

REPORT INFORMATION
  Report Type: 
  Country: None (occurrence: None)
  Receive Date: 20091007
  Receipt Date: 20090928
  Transmission Date: 20100525
  Serious: Yes (Disabling)
  Sender: FDA-Public Use
  Company Number: JP-AMGEN-US366131

PATIENT
  Sex: Female
  Weight: 49 kg

DRUGS (10)
  1. ENBREL [Suspect]
     Indication: RHEUMATOID ARTHRITIS
     Dosage: UNKNOWN
     Route: 058
     Dates: start: 20080101
  2. FOIPAN [Concomitant]
     Indication: PANCREATITIS
     Route: 048
  3. METHYCOBAL [Concomitant]
     Route: 048
  4. HALCION [Concomitant]
     Route: 048
  5. MEVALOTIN [Concomitant]
     Route: 048
  6. HYPEN [Concomitant]
     Route: 048
  7. GASTER [Concomitant]
     Route: 048
  8. SELBEX [Concomitant]
     Route: 048
  9. PREDONINE [Concomitant]
     Indication: RHEUMATOID ARTHRITIS
     Route: 048
  10. GASMOTIN [Concomitant]
     Route: 048

REACTIONS (1)
  - MENINGITIS TUBERCULOUS [None]
